FAERS Safety Report 7437026-X (Version None)
Quarter: 2011Q2

REPORT INFORMATION
  Report Type: 
  Country: None (occurrence: None)
  Receive Date: 20110426
  Receipt Date: 20110418
  Transmission Date: 20111010
  Serious: No
  Sender: FDA-Public Use
  Company Number: US-B.I. PHARMACEUTICALS,INC./RIDGEFIELD-2011-BP-11130BP

PATIENT
  Sex: Male

DRUGS (12)
  1. CLONAZEPAM [Concomitant]
     Indication: INSOMNIA
     Dosage: 1 MG
     Route: 048
  2. FLECAINIDE ACETATE [Concomitant]
     Indication: ATRIAL FIBRILLATION
     Dosage: 200 MG
     Route: 048
  3. CARBIDOPA-LEVO [Concomitant]
     Dosage: 25/100 MG QD
     Route: 048
  4. FLOMAX [Concomitant]
     Indication: BENIGN PROSTATIC HYPERPLASIA
     Dosage: 0.4 MG
     Route: 048
  5. PRAMIPEXOLE DIHYDROCHLORIDE [Concomitant]
     Indication: PARKINSON'S DISEASE
     Dosage: 1.5 MG
     Route: 048
  6. AMANTADINE HCL [Concomitant]
     Indication: PARKINSON'S DISEASE
     Dosage: 300 MG
     Route: 048
  7. PRADAXA [Suspect]
     Indication: ATRIAL FIBRILLATION
     Dosage: 300 MG
     Route: 048
  8. CARBIDOPA-LEVO [Concomitant]
     Indication: PARKINSON'S DISEASE
     Dosage: 50/200 MG TID
     Route: 048
  9. OMEPRAZOLE [Concomitant]
     Indication: GASTROOESOPHAGEAL REFLUX DISEASE
     Dosage: 20 MG
     Route: 048
  10. EXELON [Concomitant]
     Indication: PARKINSON'S DISEASE
     Dosage: 9.5 MG
     Route: 048
  11. SERTRALINE [Concomitant]
     Indication: DEPRESSION
     Dosage: 100 MG
     Route: 048
  12. METOPROLOL [Concomitant]
     Indication: HYPERTENSION
     Dosage: 1/2 TAB DAILY
     Route: 048

REACTIONS (2)
  - ERYTHEMA [None]
  - RASH PRURITIC [None]
